FAERS Safety Report 7518362-5 (Version None)
Quarter: 2011Q2

REPORT INFORMATION
  Report Type: 
  Country: None (occurrence: None)
  Receive Date: 20110602
  Receipt Date: 20090726
  Transmission Date: 20111010
  Serious: Yes (Hospitalization, Other)
  Sender: FDA-Public Use
  Company Number: US-BAYER-200927997NA

PATIENT
  Age: 66 Year
  Sex: Male
  Weight: 85.624 kg

DRUGS (13)
  1. METOPROLOL TARTRATE [Concomitant]
     Dosage: 25MG ONCE DAILY
     Route: 048
  2. COUMADIN [Concomitant]
     Dosage: 5MG FOR 5 DAYS,7.5MG FOR 2 DAYS
     Route: 048
     Dates: start: 19720101
  3. RED BLOOD CELLS [Concomitant]
     Dosage: 2 UNITS
     Dates: start: 20070710
  4. TRASYLOL [Suspect]
     Indication: AORTIC VALVE REPLACEMENT
     Dosage: LOADING DOSE OF 200ML BOLUS, 50ML/HR INFUSION
     Route: 042
     Dates: start: 20070710, end: 20070710
  5. GLYBURIDE [Concomitant]
     Dosage: 2.5MG ONCE DAILY
     Route: 048
  6. SIMVASTATIN [Concomitant]
     Dosage: 80MG DAILY
     Route: 048
  7. GLUCOPHAGE [Concomitant]
     Dosage: 500MG TWICE DAILY
     Route: 048
  8. LISINOPRIL [Concomitant]
     Dosage: 20MG DAILY
     Route: 048
  9. TRASYLOL [Suspect]
     Indication: CORONARY ARTERY BYPASS
     Dosage: INITIAL TEST DOSE OF  1ML
     Route: 042
     Dates: start: 20070710, end: 20070710
  10. PLATELETS [Concomitant]
     Dosage: 4 UNITS
     Dates: start: 20070710
  11. PROTAMINE SULFATE [Concomitant]
     Dosage: UNK
     Route: 042
     Dates: start: 20070710, end: 20070710
  12. PLASMA [Concomitant]
     Dosage: 2 UNITS
     Dates: start: 20070710
  13. INSULIN [Concomitant]
     Dosage: UNK
     Route: 042
     Dates: start: 20070710

REACTIONS (8)
  - INJURY [None]
  - ANXIETY [None]
  - PAIN [None]
  - ANHEDONIA [None]
  - RENAL FAILURE [None]
  - FEAR [None]
  - UNEVALUABLE EVENT [None]
  - DEPRESSION [None]
